FAERS Safety Report 16647563 (Version 1)
Quarter: 2019Q3

REPORT INFORMATION
  Report Type: Report from Study
  Country: US (occurrence: US)
  Receive Date: 20190730
  Receipt Date: 20190730
  Transmission Date: 20191004
  Serious: Yes (Death)
  Sender: FDA-Public Use
  Company Number: US-COVIS PHARMA B.V.-2019COV00173

PATIENT
  Age: 68 Year
  Sex: Female

DRUGS (38)
  1. ALVESCO [Suspect]
     Active Substance: CICLESONIDE
     Route: 055
  2. LINZESS [Concomitant]
     Active Substance: LINACLOTIDE
  3. FUROSEMIDE. [Concomitant]
     Active Substance: FUROSEMIDE
  4. DEXILANT [Concomitant]
     Active Substance: DEXLANSOPRAZOLE
  5. RAMIPRIL. [Concomitant]
     Active Substance: RAMIPRIL
  6. GLIMEPIRIDE. [Concomitant]
     Active Substance: GLIMEPIRIDE
  7. LISINOPRIL. [Suspect]
     Active Substance: LISINOPRIL
     Route: 048
  8. ACYCLOVIR. [Concomitant]
     Active Substance: ACYCLOVIR
  9. NARCAN [Concomitant]
     Active Substance: NALOXONE HYDROCHLORIDE
  10. BACLOFEN. [Concomitant]
     Active Substance: BACLOFEN
  11. AMOXICILLIN/CLAVULANIC ACID [Concomitant]
     Active Substance: AMOXICILLIN\CLAVULANIC ACID
  12. BACLOFEN. [Concomitant]
     Active Substance: BACLOFEN
  13. ONDANSETRON [Concomitant]
     Active Substance: ONDANSETRON
  14. ALPRAZOLAM. [Concomitant]
     Active Substance: ALPRAZOLAM
  15. HUMALOG [Concomitant]
     Active Substance: INSULIN LISPRO
  16. LACTULOSE. [Concomitant]
     Active Substance: LACTULOSE
  17. SERTRALINE [Concomitant]
     Active Substance: SERTRALINE HYDROCHLORIDE
  18. PREDNISONE. [Concomitant]
     Active Substance: PREDNISONE
  19. ISAVUCONAZOLE [Concomitant]
     Active Substance: ISAVUCONAZOLE
  20. GAVILYTE G [Concomitant]
     Active Substance: POLYETHYLENE GLYCOL 3350\POTASSIUM CHLORIDE\SODIUM BICARBONATE\SODIUM CHLORIDE\SODIUM SULFATE ANHYDROUS
  21. FASENRA [Suspect]
     Active Substance: BENRALIZUMAB
     Indication: ASTHMA
     Dosage: 30 MG/ML, EVERY 8 WEEKS
     Route: 058
  22. METOPROLOL SUCCINATE. [Suspect]
     Active Substance: METOPROLOL SUCCINATE
     Route: 048
  23. LANTUS [Concomitant]
     Active Substance: INSULIN GLARGINE
  24. MONTELUKAST SODIUM. [Concomitant]
     Active Substance: MONTELUKAST SODIUM
  25. POTASSIUM CHLORIDE. [Concomitant]
     Active Substance: POTASSIUM CHLORIDE
  26. NYSTATIN. [Concomitant]
     Active Substance: NYSTATIN
  27. FLUCONAZOLE. [Concomitant]
     Active Substance: FLUCONAZOLE
  28. LEVALBUTEROL. [Concomitant]
     Active Substance: LEVALBUTEROL
  29. CLOPIDOGREL [Concomitant]
     Active Substance: CLOPIDOGREL BISULFATE
  30. SUCRALFATE. [Concomitant]
     Active Substance: SUCRALFATE
  31. ISAVUCONAZOLE [Concomitant]
     Active Substance: ISAVUCONAZOLE
  32. SYMBICORT [Suspect]
     Active Substance: BUDESONIDE\FORMOTEROL FUMARATE DIHYDRATE
     Route: 055
  33. AZELASTINE. [Concomitant]
     Active Substance: AZELASTINE HYDROCHLORIDE
  34. ATORVASTATIN [Concomitant]
     Active Substance: ATORVASTATIN
  35. PROCTOSOL-HC [Concomitant]
     Active Substance: HYDROCORTISONE
  36. HYDROCORTISONE ACETATE. [Concomitant]
     Active Substance: HYDROCORTISONE ACETATE
  37. TEMAZEPAM. [Concomitant]
     Active Substance: TEMAZEPAM
  38. HYDROCODONE W/ACETAMINOPHEN [Concomitant]
     Active Substance: ACETAMINOPHEN\HYDROCODONE BITARTRATE

REACTIONS (1)
  - Death [Fatal]

NARRATIVE: CASE EVENT DATE: 20190702
